FAERS Safety Report 14674623 (Version 2)
Quarter: 2018Q2

REPORT INFORMATION
  Report Type: Spontaneous
  Country: US (occurrence: US)
  Receive Date: 20180323
  Receipt Date: 20180504
  Transmission Date: 20180711
  Serious: No
  Sender: FDA-Public Use
  Company Number: US-REGENERON PHARMACEUTICALS, INC.-2018-11523

PATIENT

DRUGS (2)
  1. EYLEA [Suspect]
     Active Substance: AFLIBERCEPT
     Dosage: 2 MG, EVERY 1-2 MONTHS, OD, LAST DOSE PRIOR ADVERSE EVENTS
     Route: 031
     Dates: start: 20171114, end: 20171114
  2. EYLEA [Suspect]
     Active Substance: AFLIBERCEPT
     Indication: NEOVASCULAR AGE-RELATED MACULAR DEGENERATION
     Dosage: 2 MG, EVERY 1-2 MONTHS, OD
     Route: 031
     Dates: start: 20150901, end: 20171120

REACTIONS (5)
  - Eye pain [Recovered/Resolved]
  - Visual acuity reduced [Unknown]
  - Eye inflammation [Recovered/Resolved]
  - Photophobia [Recovered/Resolved]
  - Lacrimation increased [Recovered/Resolved]

NARRATIVE: CASE EVENT DATE: 20171114
